FAERS Safety Report 7927820-0 (Version None)
Quarter: 2011Q4

REPORT INFORMATION
  Report Type: 
  Country: None (occurrence: None)
  Receive Date: 20111118
  Receipt Date: 20111108
  Transmission Date: 20120403
  Serious: Yes (Hospitalization, Other)
  Sender: FDA-Public Use
  Company Number: US-PERRIGO-11US009059

PATIENT
  Sex: Female
  Weight: 79.365 kg

DRUGS (3)
  1. NAPROXEN SODIUM [Suspect]
     Indication: PYREXIA
     Dosage: 440 MG, UNK
     Route: 048
     Dates: start: 20111023
  2. NAPROXEN SODIUM [Suspect]
     Indication: HEADACHE
     Dosage: 440 MG, SINGLE
     Route: 048
     Dates: start: 20111021, end: 20111021
  3. NAPROXEN SODIUM [Suspect]
     Indication: PAIN

REACTIONS (3)
  - NO REACTION ON PREVIOUS EXPOSURE TO DRUG [None]
  - DIZZINESS [None]
  - HALLUCINATION [None]
